FAERS Safety Report 10056023 (Version 1)
Quarter: 2014Q2

REPORT INFORMATION
  Report Type: Spontaneous
  Country: US (occurrence: None)
  Receive Date: 20140401
  Receipt Date: 20140401
  Transmission Date: 20141212
  Serious: Yes (Other)
  Sender: FDA-Public Use
  Company Number: FK201401089

PATIENT
  Age: 10 Year
  Sex: Female

DRUGS (6)
  1. VINBLASTINE [Suspect]
     Indication: OVARIAN CANCER
  2. BLEOMYCIN [Suspect]
     Indication: OVARIAN CANCER
     Dosage: 15, IU/M2
  3. DOXORUBICIN (MANUFACTURER UNKNOWN) (DOXORUBICIN HYDROCHLORIDE) (DOXORUBICIN HYDROCHLORIDE) [Suspect]
     Indication: OVARIAN CANCER
  4. ETOPOSIDE [Suspect]
     Indication: OVARIAN CANCER
  5. CISPLATIN (MANUFACTURER UNKNOWN) (CISPLATIN) (CISPLATIN) [Suspect]
     Indication: OVARIAN CANCER
  6. CYCLOPHOSPHAMIDE (MANUFACTURER UNKNOWN) (CYCLOPHOSPHAMIDE) (CYCLOPHOSPHAMIDE) [Suspect]
     Indication: OVARIAN CANCER

REACTIONS (4)
  - Hypomagnesaemia [None]
  - Febrile neutropenia [None]
  - Bone marrow failure [None]
  - Decreased appetite [None]
